FAERS Safety Report 8604757-5 (Version None)
Quarter: 2012Q3

REPORT INFORMATION
  Report Type: 
  Country: None (occurrence: None)
  Receive Date: 20120808
  Receipt Date: 20120808
  Transmission Date: 20120928
  Serious: Yes (Other)
  Sender: FDA-Public Use
  Company Number: None

PATIENT
  Sex: Female
  Weight: 58.9676 kg

DRUGS (2)
  1. TRAMADOL HCL [Suspect]
     Indication: LABYRINTHITIS
     Dosage: 50 MG 1 OR 2 PO
     Route: 048
     Dates: start: 20120807, end: 20120808
  2. TRAMADOL HCL [Suspect]
     Indication: INFECTION
     Dosage: 50 MG 1 OR 2 PO
     Route: 048
     Dates: start: 20120807, end: 20120808

REACTIONS (2)
  - CONVULSION [None]
  - JOINT STIFFNESS [None]
